FAERS Safety Report 4685794-2 (Version None)
Quarter: 2005Q2

REPORT INFORMATION
  Report Type: 
  Country: None (occurrence: None)
  Receive Date: 20050607
  Receipt Date: 20050607
  Transmission Date: 20051028
  Serious: Yes (Life-Threatening, Hospitalization)
  Sender: FDA-Public Use
  Company Number: None

PATIENT
  Age: 62 Year
  Sex: Female
  Weight: 70.3075 kg

DRUGS (6)
  1. BEXTRA [Suspect]
     Indication: FIBROMYALGIA
     Dosage: 20 MG
  2. BEXTRA [Suspect]
     Indication: OSTEOARTHRITIS
     Dosage: 20 MG
  3. FLEXERIL [Concomitant]
  4. PROZAC [Concomitant]
  5. ACIPHEX [Concomitant]
  6. AMBIEN [Concomitant]

REACTIONS (1)
  - CEREBROVASCULAR ACCIDENT [None]
